FAERS Safety Report 10394030 (Version 1)
Quarter: 2014Q3

REPORT INFORMATION
  Report Type: Spontaneous
  Country: US (occurrence: None)
  Receive Date: 20140818
  Receipt Date: 20140818
  Transmission Date: 20150326
  Serious: Yes (Other)
  Sender: FDA-Public Use
  Company Number: 2484293

PATIENT
  Age: 49 Year
  Sex: Female

DRUGS (2)
  1. ANTISEPTICS [Suspect]
     Active Substance: UNSPECIFIED INGREDIENT
     Indication: LOCAL ANAESTHESIA
     Dates: start: 20140616, end: 20140616
  2. LIDOCAINE HCL [Suspect]
     Active Substance: LIDOCAINE HYDROCHLORIDE
     Indication: LOCAL ANAESTHESIA
     Dosage: INJECTION
     Dates: start: 20140616, end: 20140616

REACTIONS (4)
  - Pain in extremity [None]
  - Paraesthesia [None]
  - Erythema [None]
  - Unevaluable event [None]

NARRATIVE: CASE EVENT DATE: 20140619
